FAERS Safety Report 6552456-6 (Version None)
Quarter: 2010Q1

REPORT INFORMATION
  Report Type: 
  Country: None (occurrence: None)
  Receive Date: 20100126
  Receipt Date: 20100115
  Transmission Date: 20100710
  Serious: Yes (Other)
  Sender: FDA-Public Use
  Company Number: PHHY2010BR02395

PATIENT
  Age: 80 Year
  Sex: Female
  Weight: 70 kg

DRUGS (9)
  1. EXELON [Suspect]
     Indication: DEMENTIA ALZHEIMER'S TYPE
     Dosage: 1.5 MG, QD
     Route: 048
     Dates: start: 20080101
  2. EXELON [Suspect]
     Dosage: 1.5 MG, BID
     Route: 048
  3. EXELON [Suspect]
     Dosage: 3 MG, BID
     Route: 048
  4. EXELON [Suspect]
     Dosage: 4.5 MG, BID
     Route: 048
  5. EXELON [Suspect]
     Dosage: 4.5 MG BID FOR 1 WEEK, EVERY OTHER WEEK
  6. EXELON [Suspect]
     Dosage: 3 MG, BID
  7. EXELON [Suspect]
     Dosage: 18MG/10CM2, 1 PATCH EVERY 24 HOURS
     Route: 062
  8. EXELON [Suspect]
     Dosage: 18 MG/10CM2,  1 PATCH DAILY FOR 1 WEEK, EVERY OTHER WEEK
  9. EBIXA [Concomitant]
     Dosage: UNK

REACTIONS (4)
  - APPLICATION SITE EROSION [None]
  - APPLICATION SITE ERYTHEMA [None]
  - APPLICATION SITE HYPERSENSITIVITY [None]
  - ARRHYTHMIA [None]
